FAERS Safety Report 15778131 (Version 1)
Quarter: 2018Q4

REPORT INFORMATION
  Report Type: Spontaneous
  Country: US (occurrence: US)
  Receive Date: 20181231
  Receipt Date: 20181231
  Transmission Date: 20190205
  Serious: No
  Sender: FDA-Public Use
  Company Number: US-B.I. PHARMACEUTICALS,INC./RIDGEFIELD-2018-BI-060958

PATIENT
  Sex: Female

DRUGS (20)
  1. COMBIVENT [Suspect]
     Active Substance: ALBUTEROL SULFATE\IPRATROPIUM BROMIDE
     Indication: CHRONIC OBSTRUCTIVE PULMONARY DISEASE
     Route: 065
  2. QVAR [Concomitant]
     Active Substance: BECLOMETHASONE DIPROPIONATE
     Indication: PRODUCT USED FOR UNKNOWN INDICATION
     Dosage: 80 MCG / ACT ?DISP 1 INHALER, RFL:0
     Route: 055
  3. EPIPEN [Concomitant]
     Active Substance: EPINEPHRINE
     Indication: PRODUCT USED FOR UNKNOWN INDICATION
     Dosage: 0.3 MG/0.3 ML AUTO INJECTOR, INJECT 0.3 ML INTRAMUSCULARLY ONCE, DISP: 1 PREFILLED PEN SYRINGE, RFL:
     Route: 030
  4. COMBIVENT RESPIMAT [Concomitant]
     Active Substance: ALBUTEROL SULFATE\IPRATROPIUM BROMIDE
     Indication: PRODUCT USED FOR UNKNOWN INDICATION
     Dosage: 20-100 MCG/ACT INHALER, . UPTO 3 ADDITIONAL TIMES PER DAY AS NEEDED., DISP: 2 INHALER, RFL: 12
     Route: 065
  5. LOPRESSOR [Concomitant]
     Active Substance: METOPROLOL TARTRATE
     Indication: PRODUCT USED FOR UNKNOWN INDICATION
     Dosage: DISP: 180, RFL: 1
     Route: 048
  6. SINGULAIR [Concomitant]
     Active Substance: MONTELUKAST SODIUM
     Indication: PRODUCT USED FOR UNKNOWN INDICATION
     Dosage: 1 TABLET 10 MG TOTAL BY MOUTH EVERY EVENING, DISP: 30 TABLET, RFL: 11
     Route: 048
  7. MULTIPLE VITAMINS [Concomitant]
     Active Substance: VITAMINS
     Indication: PRODUCT USED FOR UNKNOWN INDICATION
     Route: 048
  8. ALBUTEROL. [Concomitant]
     Active Substance: ALBUTEROL
     Indication: PRODUCT USED FOR UNKNOWN INDICATION
     Route: 065
  9. MONTELUKAST [Concomitant]
     Active Substance: MONTELUKAST SODIUM
     Indication: PRODUCT USED FOR UNKNOWN INDICATION
     Route: 065
  10. METOPROLOL. [Concomitant]
     Active Substance: METOPROLOL
     Indication: ATRIAL FIBRILLATION
     Route: 065
  11. GLUCOPHAGE XR [Concomitant]
     Active Substance: METFORMIN HYDROCHLORIDE
     Indication: PRODUCT USED FOR UNKNOWN INDICATION
     Dosage: 500 MG EXTENDED RELEASE TABLET, TAKE 1 TABLET (500 MG TOTAL) BY MOUTH, DISP: 90 TABLET, RFL: 3
     Route: 048
  12. PROAIR HFA [Concomitant]
     Active Substance: ALBUTEROL SULFATE
     Indication: PRODUCT USED FOR UNKNOWN INDICATION
     Dosage: (90 BASE) MCG/ACT INHALER, INHALE 2 PUFFS BY MOUTH FOUR TIMES DAILY AS NEEDED, DISP: 8.5 G, RFL: 5
     Route: 065
  13. DILTIAZEM. [Concomitant]
     Active Substance: DILTIAZEM
     Indication: PRODUCT USED FOR UNKNOWN INDICATION
     Route: 065
  14. ZOCOR [Concomitant]
     Active Substance: SIMVASTATIN
     Indication: PRODUCT USED FOR UNKNOWN INDICATION
     Dosage: TAKE 1 TABLET BY MOUTH AT BEDTIME, DISP: 45 TABLET, RFL: 3
     Route: 048
  15. BENADRYL [Concomitant]
     Active Substance: DIPHENHYDRAMINE HYDROCHLORIDE
     Indication: PRODUCT USED FOR UNKNOWN INDICATION
     Route: 065
  16. ATROVENT [Concomitant]
     Active Substance: IPRATROPIUM BROMIDE
     Indication: PRODUCT USED FOR UNKNOWN INDICATION
     Dosage: 0.02 % NEBULIZER SOLUTION, INHALE 2.5 ML (0.5 MG TOTAL) 4 TIMES DAILY, DX: J44.9 DISP: 240 ML, RFL:
     Route: 065
  17. CHOLECALCIFEROL [Concomitant]
     Active Substance: CHOLECALCIFEROL
     Indication: PRODUCT USED FOR UNKNOWN INDICATION
     Dosage: 2000 UNITS ?DISP: , RFL
     Route: 048
  18. XOPENEX [Concomitant]
     Active Substance: LEVALBUTEROL HYDROCHLORIDE
     Indication: PRODUCT USED FOR UNKNOWN INDICATION
     Dosage: 1.25MG/3ML MBULIZER SOLUTION, . MIX WITH IPRATROPIUM.
  19. PRILOSEC [Concomitant]
     Active Substance: OMEPRAZOLE MAGNESIUM
     Indication: PRODUCT USED FOR UNKNOWN INDICATION
     Dosage: DELAYED RELEASE CAPSULE , TAKE ONE CAPSULE BY MOUTH TWICE A DAY (MORNING AND EVENING), DISP: 180 CAP
     Route: 048
  20. PHENERGAN DM [Concomitant]
     Active Substance: DEXTROMETHORPHAN HYDROBROMIDE\PROMETHAZINE HYDROCHLORIDE
     Indication: PRODUCT USED FOR UNKNOWN INDICATION
     Dosage: 6.25-15 MG/5 ML SLOUTION, TAKE 5 ML BY MOUTH EVERY 6 HOURS AS NEEDED. DISP: 180 ML, RFL: 0
     Route: 048

REACTIONS (7)
  - Dyspnoea [Unknown]
  - Hypoxia [Unknown]
  - Weight decreased [Unknown]
  - Muscle spasms [Unknown]
  - Productive cough [Unknown]
  - Palpitations [Unknown]
  - Pseudomonas infection [Unknown]
